FAERS Safety Report 8393490-3 (Version None)
Quarter: 2012Q2

REPORT INFORMATION
  Report Type: 
  Country: None (occurrence: None)
  Receive Date: 20120529
  Receipt Date: 20120525
  Transmission Date: 20120825
  Serious: No
  Sender: FDA-Public Use
  Company Number: AU-ELI_LILLY_AND_COMPANY-AU201111008692

PATIENT
  Sex: Male

DRUGS (11)
  1. GLYBURIDE [Concomitant]
  2. GLUCOSAMINE [Concomitant]
  3. SIMVASTATIN [Concomitant]
  4. FISH OIL [Concomitant]
  5. PERINDOPRIL ERBUMINE [Concomitant]
  6. METFORMIN HCL [Concomitant]
  7. ASPIRIN [Concomitant]
  8. BYETTA [Suspect]
     Indication: TYPE 2 DIABETES MELLITUS
     Dosage: 10 UG, BID
     Route: 058
     Dates: start: 20110808, end: 20111017
  9. ACE INHIBITORS [Concomitant]
  10. OMEPRAZOLE [Concomitant]
  11. SERTRALINE HYDROCHLORIDE [Concomitant]

REACTIONS (4)
  - WEIGHT DECREASED [None]
  - DECREASED APPETITE [None]
  - AMYLASE INCREASED [None]
  - LIPASE INCREASED [None]
